FAERS Safety Report 14297283 (Version 2)
Quarter: 2018Q4

REPORT INFORMATION
  Report Type: Spontaneous
  Country: GB (occurrence: GB)
  Receive Date: 20171218
  Receipt Date: 20181213
  Transmission Date: 20190204
  Serious: Yes (Disabling, Other)
  Sender: FDA-Public Use
  Company Number: GB-MYLANLABS-2017M1079156

PATIENT
  Age: 37 Year
  Sex: Male
  Weight: 74 kg

DRUGS (2)
  1. MIGRAMAX [Suspect]
     Active Substance: ASPIRIN DL-LYSINE\METOCLOPRAMIDE
     Indication: MIGRAINE
     Dosage: ONE SACHET TAKEN. A 2ND SACHET TAKEN AFTER 2 HOURS. A 3RD SACHET TAKEN AFTER A FURTHER 2 HOURS.
     Route: 048
     Dates: start: 20171114, end: 20171115
  2. IBUPROFEN. [Suspect]
     Active Substance: IBUPROFEN
     Indication: MIGRAINE
     Dosage: 400 MG, UNK
     Route: 048
     Dates: start: 20171114, end: 20171114

REACTIONS (3)
  - Haemorrhage intracranial [Not Recovered/Not Resolved]
  - Hemiparesis [Unknown]
  - Headache [Unknown]

NARRATIVE: CASE EVENT DATE: 20171115
